FAERS Safety Report 11730178 (Version 1)
Quarter: 2015Q4

REPORT INFORMATION
  Report Type: Spontaneous
  Country: FR (occurrence: FR)
  Receive Date: 20151112
  Receipt Date: 20151112
  Transmission Date: 20160304
  Serious: Yes (Congenital Anomaly)
  Sender: FDA-Public Use
  Company Number: FR-ABBVIE-15P-056-1498722-00

PATIENT
  Sex: Male

DRUGS (1)
  1. DEPAKINE CHRONO [Suspect]
     Active Substance: VALPROATE SODIUM
     Indication: MATERNAL EXPOSURE TIMING UNSPECIFIED
     Route: 064

REACTIONS (15)
  - Neurodevelopmental disorder [Not Recovered/Not Resolved]
  - Learning disorder [Unknown]
  - Fine motor skill dysfunction [Unknown]
  - Atrial septal defect [Unknown]
  - Personal relationship issue [Unknown]
  - Foetal exposure during pregnancy [Unknown]
  - Psychotic disorder [Unknown]
  - Unevaluable event [Unknown]
  - Developmental delay [Unknown]
  - Headache [Unknown]
  - Anxiety [Unknown]
  - Ligament laxity [Unknown]
  - Hallucination [Unknown]
  - Vascular anastomosis [Unknown]
  - Sleep disorder [Unknown]

NARRATIVE: CASE EVENT DATE: 200302
